FAERS Safety Report 5066194-2 (Version None)
Quarter: 2006Q3

REPORT INFORMATION
  Report Type: 
  Country: None (occurrence: None)
  Receive Date: 20060703
  Receipt Date: 20060311
  Transmission Date: 20061208
  Serious: No
  Sender: FDA-Public Use
  Company Number: ENTC2006-0093

PATIENT
  Age: 73 Year
  Sex: Male
  Weight: 136 kg

DRUGS (2)
  1. STALEVO 50 [Suspect]
     Indication: PARKINSON'S DISEASE
     Dosage: 300 MG, 3 IN 1 D, ORAL
     Route: 048
     Dates: start: 20050801, end: 20060224
  2. CYMBALTA [Concomitant]

REACTIONS (1)
  - DRUG EFFECT PROLONGED [None]
